FAERS Safety Report 9859126 (Version 2)
Quarter: 2014Q1

REPORT INFORMATION
  Report Type: Spontaneous
  Country: FR (occurrence: FR)
  Receive Date: 20140131
  Receipt Date: 20140225
  Transmission Date: 20141002
  Serious: Yes (Other)
  Sender: FDA-Public Use
  Company Number: FR-WATSON-2014-01093

PATIENT
  Age: 19 Year
  Sex: Female

DRUGS (4)
  1. PREDNISONE [Suspect]
     Indication: PRODUCT USED FOR UNKNOWN INDICATION
     Dosage: 60 MG, DAILY
     Route: 048
     Dates: start: 20130319, end: 20130325
  2. PURINETHOL [Suspect]
     Indication: NON-HODGKIN^S LYMPHOMA
     Dosage: 75 MG, DAILY
     Route: 048
     Dates: start: 20130225, end: 20130308
  3. METHOTREXATE /00113802/ [Suspect]
     Indication: NON-HODGKIN^S LYMPHOMA
     Dosage: 35 MG, 1/WEEK
     Route: 048
     Dates: start: 20130319, end: 20130423
  4. VINCRISTINE TEVA [Suspect]
     Indication: NON-HODGKIN^S LYMPHOMA
     Dosage: 2 MG, SINGLE
     Route: 042
     Dates: start: 20130319, end: 20130319

REACTIONS (1)
  - Febrile bone marrow aplasia [Recovered/Resolved]
